FAERS Safety Report 9470172 (Version 1)
Quarter: 2013Q3

REPORT INFORMATION
  Report Type: Spontaneous
  Country: None (occurrence: US)
  Receive Date: 20130822
  Receipt Date: 20130822
  Transmission Date: 20140515
  Serious: Yes (Hospitalization)
  Sender: FDA-Public Use
  Company Number: US-COVIDIEN/TYCO HEALTHCARE/MALLINCKRODT-T201303826

PATIENT
  Sex: Female

DRUGS (4)
  1. GABLOFEN [Suspect]
     Indication: MUSCLE SPASTICITY
     Dosage: 2000 MCG/ML AT 100 MCG/DAY
     Route: 037
     Dates: start: 20130717, end: 20130717
  2. GABLOFEN [Suspect]
     Dosage: 1000 MCG/ML AT 50 MCG/DAY
     Route: 037
     Dates: start: 20130717
  3. BACLOFEN [Suspect]
     Indication: MUSCLE SPASTICITY
     Dosage: UNK
  4. ALL OTHER THERAPEUTIC PRODUCTS [Suspect]
     Indication: PRODUCT USED FOR UNKNOWN INDICATION
     Dosage: UNK

REACTIONS (2)
  - Somnolence [Unknown]
  - Hypotonia [Unknown]
